FAERS Safety Report 6603976-7 (Version None)
Quarter: 2010Q1

REPORT INFORMATION
  Report Type: 
  Country: None (occurrence: None)
  Receive Date: 20100226
  Receipt Date: 20090331
  Transmission Date: 20100710
  Serious: No
  Sender: FDA-Public Use
  Company Number: A0776412A

PATIENT
  Age: 54 Year
  Sex: Male

DRUGS (7)
  1. LAMICTAL CD [Suspect]
     Indication: FATIGUE
     Dosage: 250MG PER DAY
     Route: 048
     Dates: start: 20081001
  2. SYNTHROID [Concomitant]
  3. LISINOPRIL [Concomitant]
  4. INDAPAMIDE [Concomitant]
  5. ZOCOR [Concomitant]
  6. WELLBUTRIN SR [Concomitant]
  7. AMBIEN [Concomitant]

REACTIONS (4)
  - CHEILITIS [None]
  - LIP SWELLING [None]
  - ORAL DISCOMFORT [None]
  - PAINFUL DEFAECATION [None]
